FAERS Safety Report 5333830-2 (Version None)
Quarter: 2007Q2

REPORT INFORMATION
  Report Type: 
  Country: None (occurrence: None)
  Receive Date: 20070524
  Receipt Date: 20070516
  Transmission Date: 20071010
  Serious: Yes (Other)
  Sender: FDA-Public Use
  Company Number: US-ELI_LILLY_AND_COMPANY-US200705004296

PATIENT
  Age: 73 Year
  Sex: Male
  Weight: 95.238 kg

DRUGS (5)
  1. BYETTA [Suspect]
     Indication: DIABETES MELLITUS NON-INSULIN-DEPENDENT
     Dosage: 5 UG, 2/D
     Route: 058
     Dates: start: 20060101, end: 20070419
  2. BYETTA [Suspect]
     Dosage: 10 UG, 2/D
     Route: 058
     Dates: start: 20070420
  3. NOVOLOG MIX 70/30 [Concomitant]
     Dosage: 20 U, EACH MORNING
     Route: 058
  4. NOVOLOG MIX 70/30 [Concomitant]
     Dosage: 30 U, EACH EVENING
     Route: 058
  5. TRICOR [Concomitant]
     Dosage: 45 MG, UNKNOWN

REACTIONS (6)
  - BLOOD GLUCOSE DECREASED [None]
  - CARDIAC FAILURE CONGESTIVE [None]
  - FEELING ABNORMAL [None]
  - HEART RATE IRREGULAR [None]
  - HYPERHIDROSIS [None]
  - WEIGHT DECREASED [None]
